FAERS Safety Report 8078478-4 (Version None)
Quarter: 2012Q1

REPORT INFORMATION
  Report Type: 
  Country: None (occurrence: None)
  Receive Date: 20120127
  Receipt Date: 20120127
  Transmission Date: 20120608
  Serious: No
  Sender: FDA-Public Use
  Company Number: None

PATIENT
  Sex: Female

DRUGS (1)
  1. KEPPRA XR [Suspect]
     Indication: EPILEPSY
     Dosage: 1500 MG QHS PO
     Route: 048
     Dates: start: 20090401

REACTIONS (1)
  - NO ADVERSE EVENT [None]
